FAERS Safety Report 9287258 (Version 1)
Quarter: 2013Q2

REPORT INFORMATION
  Report Type: Spontaneous
  Country: US (occurrence: US)
  Receive Date: 20130513
  Receipt Date: 20130513
  Transmission Date: 20140414
  Serious: Yes (Disabling)
  Sender: FDA-Public Use
  Company Number: US-B.I. PHARMACEUTICALS,INC./RIDGEFIELD-2013-BI-12779BP

PATIENT
  Age: 77 Year
  Sex: Male
  Weight: 77 kg

DRUGS (5)
  1. FLOMAX CAPSULES [Suspect]
     Indication: BENIGN PROSTATIC HYPERPLASIA
     Dosage: 0.8 MG
     Route: 048
     Dates: start: 200112
  2. PRADAXA [Suspect]
     Indication: ATRIAL FIBRILLATION
     Dosage: 300 MG
     Route: 048
  3. SPIRIVA [Suspect]
     Indication: CHRONIC OBSTRUCTIVE PULMONARY DISEASE
     Dosage: 18 MCG
     Route: 055
     Dates: start: 201302, end: 201303
  4. NORVASC [Concomitant]
     Indication: HYPERTENSION
     Dosage: 5 MG
     Route: 048
  5. SOTALOL [Concomitant]
     Indication: HYPERTENSION
     Dosage: 160 MG
     Route: 048

REACTIONS (5)
  - Blindness unilateral [Recovered/Resolved]
  - Eye pain [Recovered/Resolved]
  - Bronchitis [Not Recovered/Not Resolved]
  - Increased upper airway secretion [Not Recovered/Not Resolved]
  - Cough [Not Recovered/Not Resolved]
